FAERS Safety Report 7282269-1 (Version None)
Quarter: 2011Q1

REPORT INFORMATION
  Report Type: 
  Country: None (occurrence: None)
  Receive Date: 20110125
  Receipt Date: 20110110
  Transmission Date: 20110831
  Serious: Yes (Death)
  Sender: FDA-Public Use
  Company Number: 025527

PATIENT
  Age: 73 Year
  Sex: Male

DRUGS (4)
  1. ALPRAZOLAM [Suspect]
     Dosage: (ORAL)
     Route: 048
  2. CLONAZEPAM [Suspect]
     Dosage: (ORAL)
     Route: 048
  3. TAMSULOSIN HCL [Suspect]
     Dosage: (ORAL)
     Route: 048
  4. DULOXETINE [Suspect]
     Dosage: (ORAL)
     Route: 048

REACTIONS (1)
  - COMPLETED SUICIDE [None]
